FAERS Safety Report 17493153 (Version 3)
Quarter: 2020Q3

REPORT INFORMATION
  Report Type: Spontaneous
  Country: JP (occurrence: JP)
  Receive Date: 20200304
  Receipt Date: 20200804
  Transmission Date: 20201102
  Serious: Yes (Hospitalization, Other)
  Sender: FDA-Public Use
  Company Number: JP-SA-2020SA050845

PATIENT

DRUGS (5)
  1. ELPLAT [Suspect]
     Active Substance: OXALIPLATIN
     Indication: METASTASES TO LIVER
  2. FLUOROURACIL. [Suspect]
     Active Substance: FLUOROURACIL
     Indication: COLON CANCER
     Dosage: UNK UNK, QCY
     Route: 065
  3. ELPLAT [Suspect]
     Active Substance: OXALIPLATIN
     Indication: COLON CANCER
     Dosage: UNK UNK, QOW
     Route: 041
  4. LEVOFOLINATE CALCIUM [Suspect]
     Active Substance: LEVOLEUCOVORIN CALCIUM
     Indication: COLON CANCER
     Dosage: UNK UNK, QCY
     Route: 065
  5. BEVACIZUMAB. [Suspect]
     Active Substance: BEVACIZUMAB
     Indication: COLON CANCER
     Dosage: UNK UNK, QCY

REACTIONS (5)
  - Portal hypertension [Recovered/Resolved]
  - Ascites [Recovered/Resolved]
  - Arteriovenous fistula [Recovered/Resolved]
  - Portal shunt [Recovered/Resolved]
  - Mesenteric vein thrombosis [Recovered/Resolved]
